FAERS Safety Report 11773400 (Version 2)
Quarter: 2015Q4

REPORT INFORMATION
  Report Type: Spontaneous
  Country: US (occurrence: US)
  Receive Date: 20151124
  Receipt Date: 20151228
  Transmission Date: 20160304
  Serious: Yes (Other)
  Sender: FDA-Public Use
  Company Number: US-GE HEALTHCARE MEDICAL DIAGNOSTICS-OMPQ-PR-1511S-3016

PATIENT
  Age: 44 Year
  Sex: Male

DRUGS (2)
  1. OMNIPAQUE [Suspect]
     Active Substance: IOHEXOL
     Indication: DIAGNOSTIC PROCEDURE
  2. OMNIPAQUE [Suspect]
     Active Substance: IOHEXOL
     Indication: ABDOMINAL PAIN
     Route: 042
     Dates: start: 20151110, end: 20151110

REACTIONS (3)
  - Oral pruritus [Recovered/Resolved]
  - Urticaria [Recovered/Resolved]
  - Tongue pruritus [Recovered/Resolved]

NARRATIVE: CASE EVENT DATE: 20151110
